FAERS Safety Report 5633091-0 (Version None)
Quarter: 2008Q1

REPORT INFORMATION
  Report Type: 
  Country: None (occurrence: None)
  Receive Date: 20080221
  Receipt Date: 20080211
  Transmission Date: 20080703
  Serious: Yes (Other)
  Sender: FDA-Public Use
  Company Number: DE-ALLERGAN-0801784US

PATIENT
  Sex: Female

DRUGS (2)
  1. DYSPORT [Suspect]
     Indication: HEREDITARY SPASTIC PARAPLEGIA
     Dosage: 1000 UNITS, UNK
  2. DYSPORT [Suspect]
     Dosage: 1500 UNITS, UNK

REACTIONS (2)
  - BLOOD CREATINE PHOSPHOKINASE INCREASED [None]
  - PAIN [None]
